FAERS Safety Report 5799465-2 (Version None)
Quarter: 2008Q3

REPORT INFORMATION
  Report Type: 
  Country: None (occurrence: None)
  Receive Date: 20080701
  Receipt Date: 20080701
  Transmission Date: 20090109
  Serious: Yes (Hospitalization)
  Sender: FDA-Public Use
  Company Number: None

PATIENT
  Sex: Male
  Weight: 96.3 kg

DRUGS (2)
  1. FLUOROURACIL [Suspect]
     Dosage: 8400 MG
  2. MITOMYCIN-C [Suspect]
     Dosage: 21 MG

REACTIONS (1)
  - NEUTROPHIL COUNT DECREASED [None]
